FAERS Safety Report 8124315-9 (Version None)
Quarter: 2012Q1

REPORT INFORMATION
  Report Type: 
  Country: None (occurrence: None)
  Receive Date: 20120209
  Receipt Date: 20120201
  Transmission Date: 20120608
  Serious: Yes (Hospitalization, Other)
  Sender: FDA-Public Use
  Company Number: US-BAYER-201037310NA

PATIENT
  Age: 18 Year
  Sex: Female

DRUGS (7)
  1. HYDROXYZINE [Concomitant]
     Indication: ANXIETY
  2. EFFEXOR [Concomitant]
     Indication: DEPRESSION
  3. EFFEXOR [Concomitant]
     Indication: ANXIETY
  4. ZOLOFT [Concomitant]
     Indication: ANXIETY
  5. HYDROXYZINE [Concomitant]
     Indication: DEPRESSION
  6. YASMIN [Suspect]
     Indication: PREMENSTRUAL SYNDROME
     Dosage: UNK
     Route: 048
     Dates: start: 20080913, end: 20081108
  7. ZOLOFT [Concomitant]
     Indication: DEPRESSION

REACTIONS (9)
  - DYSPEPSIA [None]
  - CHOLECYSTITIS ACUTE [None]
  - ANXIETY [None]
  - CONSTIPATION [None]
  - DIARRHOEA [None]
  - ABDOMINAL DISTENSION [None]
  - FLATULENCE [None]
  - CHOLECYSTECTOMY [None]
  - DEPRESSION [None]
